FAERS Safety Report 22528586 (Version 1)
Quarter: 2023Q2

REPORT INFORMATION
  Report Type: Spontaneous
  Country: US (occurrence: None)
  Receive Date: 20230607
  Receipt Date: 20230607
  Transmission Date: 20230721
  Serious: Yes (Hospitalization)
  Sender: FDA-Public Use
  Company Number: US-ROCHE-3360958

PATIENT
  Sex: Female
  Weight: 89.892 kg

DRUGS (3)
  1. OCREVUS [Suspect]
     Active Substance: OCRELIZUMAB
     Indication: Relapsing-remitting multiple sclerosis
     Route: 042
     Dates: start: 2019
  2. GABAPENTIN [Concomitant]
     Active Substance: GABAPENTIN
     Indication: Neuralgia
     Dosage: 2 IN MORNING, AND 2 AT NIGHT
  3. FLUOXETINE [Concomitant]
     Active Substance: FLUOXETINE HYDROCHLORIDE

REACTIONS (5)
  - Hemiparesis [Unknown]
  - Stomatitis [Unknown]
  - Feeding disorder [Unknown]
  - Thermal burn [Unknown]
  - Tongue geographic [Unknown]

NARRATIVE: CASE EVENT DATE: 20210101
